FAERS Safety Report 25180065 (Version 1)
Quarter: 2025Q2

REPORT INFORMATION
  Report Type: Spontaneous
  Country: ES (occurrence: ES)
  Receive Date: 20250409
  Receipt Date: 20250409
  Transmission Date: 20250716
  Serious: Yes (Hospitalization)
  Sender: MERCK SHARP AND DOHME
  Company Number: None

PATIENT
  Age: 54 Year
  Sex: Female

DRUGS (1)
  1. PEMBROLIZUMAB [Suspect]
     Active Substance: PEMBROLIZUMAB
     Indication: Breast neoplasm
     Route: 042
     Dates: start: 20240902, end: 20241009

REACTIONS (3)
  - Hepatocellular injury [Recovered/Resolved]
  - Immune-mediated adrenal insufficiency [Recovered/Resolved]
  - Immune-mediated thyroiditis [Recovered/Resolved]

NARRATIVE: CASE EVENT DATE: 20241023
